FAERS Safety Report 4497297-9 (Version None)
Quarter: 2004Q3

REPORT INFORMATION
  Report Type: 
  Country: None (occurrence: None)
  Receive Date: 20040927
  Receipt Date: 20040722
  Transmission Date: 20050211
  Serious: No
  Sender: FDA-Public Use
  Company Number: USA040773365

PATIENT
  Age: 52 Year
  Sex: Female
  Weight: 57 kg

DRUGS (3)
  1. STRATTERA [Suspect]
     Indication: LEARNING DISORDER
     Dosage: 60 MG IN THE EVENING
     Dates: start: 20040708
  2. NEXIUM [Concomitant]
  3. MULTIVITAMINS NOS (MULTIVITAMINS NOS) [Concomitant]

REACTIONS (1)
  - DEPRESSION [None]
